FAERS Safety Report 6812083-X (Version None)
Quarter: 2010Q3

REPORT INFORMATION
  Report Type: 
  Country: None (occurrence: None)
  Receive Date: 20100701
  Receipt Date: 20100618
  Transmission Date: 20110219
  Serious: Yes (Other)
  Sender: FDA-Public Use
  Company Number: TR-ELI_LILLY_AND_COMPANY-TR201006005585

PATIENT
  Sex: Female

DRUGS (4)
  1. HUMULIN R [Suspect]
     Indication: GESTATIONAL DIABETES
     Dosage: 24 U, 3/D
     Route: 058
     Dates: start: 20100329, end: 20100608
  2. HUMULIN R [Suspect]
     Dosage: 8 IU, OTHER, AT NOON
     Route: 058
     Dates: start: 20100329, end: 20100608
  3. HUMULIN R [Suspect]
     Dosage: 8 IU, EACH EVENING
     Route: 058
     Dates: start: 20100329, end: 20100608
  4. HUMULIN N [Suspect]
     Indication: GESTATIONAL DIABETES
     Dosage: 10 U, DAILY (1/D), AT NIGHT
     Route: 058
     Dates: start: 20100329, end: 20100608

REACTIONS (2)
  - ABORTION SPONTANEOUS [None]
  - DRUG EXPOSURE DURING PREGNANCY [None]
